FAERS Safety Report 17196849 (Version 1)
Quarter: 2019Q4

REPORT INFORMATION
  Report Type: Spontaneous
  Country: US (occurrence: US)
  Receive Date: 20191224
  Receipt Date: 20191224
  Transmission Date: 20200122
  Serious: Yes (Other)
  Sender: FDA-Public Use
  Company Number: NVSC2019US077958

PATIENT
  Age: 72 Year
  Sex: Female

DRUGS (1)
  1. HYDROXYCHLOROQUINE [Suspect]
     Active Substance: HYDROXYCHLOROQUINE
     Indication: SJOGREN^S SYNDROME
     Dosage: 5.44 MG/KG, QD
     Route: 065

REACTIONS (3)
  - Retinopathy [Unknown]
  - Product use in unapproved indication [Unknown]
  - Vision blurred [Unknown]
